FAERS Safety Report 18135075 (Version 1)
Quarter: 2020Q3

REPORT INFORMATION
  Report Type: Spontaneous
  Country: US (occurrence: US)
  Receive Date: 20200811
  Receipt Date: 20200811
  Transmission Date: 20201103
  Serious: No
  Sender: FDA-Public Use
  Company Number: None

PATIENT
  Age: 67 Year
  Sex: Female
  Weight: 78.75 kg

DRUGS (18)
  1. ALLOPURINOL. [Concomitant]
     Active Substance: ALLOPURINOL
     Dates: start: 20190626
  2. ASPIRIN. [Concomitant]
     Active Substance: ASPIRIN
     Dates: start: 20190213
  3. CARAFATE [Concomitant]
     Active Substance: SUCRALFATE
     Dates: start: 20190626
  4. CARVEDILOL. [Concomitant]
     Active Substance: CARVEDILOL
     Dates: start: 20190626
  5. LIPITOR [Concomitant]
     Active Substance: ATORVASTATIN CALCIUM
     Dates: start: 20190213
  6. POTASSIUM [Concomitant]
     Active Substance: POTASSIUM
     Dates: start: 20190626
  7. AMLODIPINE [Concomitant]
     Active Substance: AMLODIPINE BESYLATE
     Dates: start: 20190213
  8. LOSARTAN. [Concomitant]
     Active Substance: LOSARTAN
     Dates: start: 20190213
  9. MAGNESIUM [Concomitant]
     Active Substance: MAGNESIUM
     Dates: start: 20190213
  10. JAKAFI [Suspect]
     Active Substance: RUXOLITINIB
     Indication: POLYCYTHAEMIA VERA
     Route: 048
     Dates: start: 20190214
  11. ADDERALL [Concomitant]
     Active Substance: AMPHETAMINE ASPARTATE\AMPHETAMINE SULFATE\DEXTROAMPHETAMINE SACCHARATE\DEXTROAMPHETAMINE SULFATE
     Dates: start: 20190828
  12. CYANOCOBALAMIN. [Concomitant]
     Active Substance: CYANOCOBALAMIN
     Dates: start: 20190725
  13. FOLIC ACID. [Concomitant]
     Active Substance: FOLIC ACID
     Dates: start: 20190213
  14. KLONOPIN [Concomitant]
     Active Substance: CLONAZEPAM
     Dates: start: 20190626
  15. VITAMIN D [Concomitant]
     Active Substance: VITAMIN D NOS
     Dates: start: 20190213
  16. CYMBALTA [Concomitant]
     Active Substance: DULOXETINE HYDROCHLORIDE
     Dates: start: 20190626
  17. ZANTAC [Concomitant]
     Active Substance: RANITIDINE HYDROCHLORIDE
     Dates: start: 20190626
  18. LASIX [Concomitant]
     Active Substance: FUROSEMIDE
     Dates: start: 20190213

REACTIONS (2)
  - Depressed mood [None]
  - Therapy interrupted [None]

NARRATIVE: CASE EVENT DATE: 20200811
